FAERS Safety Report 9658845 (Version 2)
Quarter: 2013Q4

REPORT INFORMATION
  Report Type: Spontaneous
  Country: US (occurrence: US)
  Receive Date: 20131030
  Receipt Date: 20131030
  Transmission Date: 20140711
  Serious: No
  Sender: FDA-Public Use
  Company Number: US-PURDUE-USA-2010-0048094

PATIENT
  Sex: Male

DRUGS (7)
  1. OXYCONTIN (NDA 22-272) [Suspect]
     Indication: PAIN
     Dosage: 60 MG, TID
  2. OXYCONTIN (NDA 22-272) [Suspect]
     Indication: RHEUMATOID ARTHRITIS
     Dosage: 40 MG, UNK
  3. OXYCODONE HCL IR CAPSULES [Concomitant]
     Indication: PAIN
     Dosage: 80 MG, UNK
  4. CARISOPRODOL [Concomitant]
     Indication: FIBROMYALGIA
     Dosage: 350 MG, TID
  5. VICODIN [Concomitant]
     Indication: MIGRAINE
     Dosage: 5/500
  6. DIAZEPAM [Concomitant]
     Indication: PANIC DISORDER
     Dosage: 5 MG, TID
  7. VITAMINS NOS [Suspect]
     Indication: PRODUCT USED FOR UNKNOWN INDICATION

REACTIONS (5)
  - Medication residue present [Unknown]
  - Therapeutic response delayed [Unknown]
  - Drug effect decreased [Unknown]
  - Drug ineffective [Unknown]
  - Diarrhoea [Unknown]
